FAERS Safety Report 10150724 (Version 1)
Quarter: 2014Q2

REPORT INFORMATION
  Report Type: Spontaneous
  Country: US (occurrence: US)
  Receive Date: 20140502
  Receipt Date: 20140502
  Transmission Date: 20141212
  Serious: No
  Sender: FDA-Public Use
  Company Number: US-ASTRAZENECA-2013SE41496

PATIENT
  Sex: Female

DRUGS (2)
  1. PRILOSEC OTC [Suspect]
     Route: 048
     Dates: start: 20130417, end: 20130420
  2. ALL OTHER THERAPEUTIC PRODUCTS [Concomitant]
     Dosage: UNKNOWN

REACTIONS (6)
  - Dyspnoea [Recovering/Resolving]
  - Local swelling [Recovered/Resolved]
  - Eyelid oedema [Not Recovered/Not Resolved]
  - Swelling face [Recovered/Resolved]
  - Eye swelling [Not Recovered/Not Resolved]
  - Malaise [Not Recovered/Not Resolved]
